FAERS Safety Report 6577577-3 (Version None)
Quarter: 2010Q1

REPORT INFORMATION
  Report Type: 
  Country: None (occurrence: None)
  Receive Date: 20100211
  Receipt Date: 20100111
  Transmission Date: 20100710
  Serious: No
  Sender: FDA-Public Use
  Company Number: US-BAYER-201010716BCC

PATIENT
  Age: 55 Year
  Sex: Female
  Weight: 113 kg

DRUGS (4)
  1. ALEVE (CAPLET) [Suspect]
     Indication: MYALGIA
     Dosage: CONSUMER TOOK 2 TO 3 CAPLETS EACH DAY
     Route: 048
     Dates: start: 20100107
  2. BENICAR HCT [Concomitant]
     Route: 065
  3. EFFEXOR [Concomitant]
     Route: 065
  4. LOW DOSE 81 MG BAYER ASPIRIN [Concomitant]
     Dosage: TOTAL DAILY DOSE: 81 MG  UNIT DOSE: 81 MG
     Route: 048

REACTIONS (1)
  - ABDOMINAL PAIN UPPER [None]
